FAERS Safety Report 19969097 (Version 1)
Quarter: 2021Q4

REPORT INFORMATION
  Report Type: Spontaneous
  Country: US (occurrence: US)
  Receive Date: 20211019
  Receipt Date: 20211019
  Transmission Date: 20220303
  Serious: No
  Sender: FDA-Public Use
  Company Number: US-UROGEN PHARMA LTD.-2021-UGN-000050

PATIENT
  Sex: Male

DRUGS (4)
  1. JELMYTO [Suspect]
     Active Substance: MITOMYCIN
     Indication: Transitional cell cancer of the renal pelvis and ureter
     Dosage: EVERY OTHER WEEK 11 CC (INSTILLATION)
     Dates: start: 20210528, end: 20210528
  2. JELMYTO [Suspect]
     Active Substance: MITOMYCIN
     Dosage: EVERY OTHER WEEK 11 CC (INSTILLATION)
  3. JELMYTO [Suspect]
     Active Substance: MITOMYCIN
     Dosage: EVERY OTHER WEEK 11 CC (INSTILLATION)
     Dates: start: 20210701, end: 20210701
  4. JELMYTO [Suspect]
     Active Substance: MITOMYCIN
     Dosage: EVERY OTHER WEEK 11 CC (INSTILLATION)
     Dates: start: 20210716, end: 20210716

REACTIONS (1)
  - Rash [Recovered/Resolved]

NARRATIVE: CASE EVENT DATE: 20210702
